FAERS Safety Report 13978150 (Version 1)
Quarter: 2017Q3

REPORT INFORMATION
  Report Type: Spontaneous
  Country: US (occurrence: US)
  Receive Date: 20170915
  Receipt Date: 20170915
  Transmission Date: 20171128
  Serious: No
  Sender: FDA-Public Use
  Company Number: US-ASTRAZENECA-2017SE93318

PATIENT
  Age: 26880 Day
  Sex: Male
  Weight: 93 kg

DRUGS (3)
  1. COUMADIN [Concomitant]
     Active Substance: WARFARIN SODIUM
  2. BYDUREON [Suspect]
     Active Substance: EXENATIDE
     Indication: TYPE 2 DIABETES MELLITUS
     Route: 058
  3. TOUJEO [Concomitant]
     Active Substance: INSULIN GLARGINE
     Dosage: EVERY NIGHT

REACTIONS (4)
  - Injection site nodule [Not Recovered/Not Resolved]
  - Injection site bruising [Unknown]
  - Body height decreased [Not Recovered/Not Resolved]
  - Injection site discomfort [Unknown]

NARRATIVE: CASE EVENT DATE: 20170907
